FAERS Safety Report 9560205 (Version 2)
Quarter: 2014Q1

REPORT INFORMATION
  Report Type: Spontaneous
  Country: US (occurrence: US)
  Receive Date: 20130927
  Receipt Date: 20140317
  Transmission Date: 20141002
  Serious: No
  Sender: FDA-Public Use
  Company Number: US-BIOGENIDEC-2013BI049203

PATIENT
  Age: 54 Year
  Sex: Female

DRUGS (12)
  1. TECFIDERA [Suspect]
     Indication: MULTIPLE SCLEROSIS
     Route: 048
     Dates: start: 20130510, end: 20130516
  2. TECFIDERA [Suspect]
     Indication: MULTIPLE SCLEROSIS
     Route: 048
     Dates: start: 20130510
  3. TECFIDERA [Suspect]
     Indication: MULTIPLE SCLEROSIS
     Route: 048
     Dates: start: 20130517
  4. NEURONTIN [Concomitant]
  5. LISINOPRIL [Concomitant]
  6. SERTRALINE [Concomitant]
  7. BACLOFEN [Concomitant]
  8. LEVOTHYROXINE [Concomitant]
  9. RA VITAMIN B-1 [Concomitant]
  10. METHENAMINE MD [Concomitant]
  11. VESICARE [Concomitant]
  12. VITAMIN D3 [Concomitant]

REACTIONS (3)
  - Urinary tract infection [Unknown]
  - Flushing [Not Recovered/Not Resolved]
  - Rash generalised [Not Recovered/Not Resolved]
